FAERS Safety Report 6809643-9 (Version None)
Quarter: 2010Q2

REPORT INFORMATION
  Report Type: 
  Country: None (occurrence: None)
  Receive Date: 20100630
  Receipt Date: 20100617
  Transmission Date: 20101027
  Serious: Yes (Hospitalization)
  Sender: FDA-Public Use
  Company Number: US-PFIZER INC-2010063170

PATIENT
  Sex: Female
  Weight: 55 kg

DRUGS (18)
  1. CLINDAMYCIN HCL [Suspect]
     Indication: POST PROCEDURAL INFECTION
     Dosage: 150 MG, 4X/DAY
     Route: 048
     Dates: start: 20100503, end: 20100510
  2. FUROSEMIDE [Concomitant]
     Indication: DIABETES MELLITUS
     Dosage: UNK
  3. LANTUS [Concomitant]
     Indication: DIABETES MELLITUS
     Dosage: UNK
  4. DIGOXIN [Concomitant]
     Indication: CARDIAC DISORDER
     Dosage: UNK
  5. SPIRONOLACTONE [Concomitant]
     Dosage: UNK
  6. SPIRONOLACTONE W/ HYDROCHLOROTHIAZIDE [Concomitant]
     Dosage: 25/25 MG, UNK
  7. ZETIA [Concomitant]
     Dosage: 10 MG, UNK
  8. ISOSORBIDE MONONITRATE [Concomitant]
     Dosage: 30 MG, UNK
  9. PLAVIX [Concomitant]
     Dosage: UNK
  10. POTASSIUM [Concomitant]
     Dosage: UNK
  11. PRAVASTATIN [Concomitant]
     Dosage: UNK
  12. METFORMIN [Concomitant]
     Dosage: UNK
  13. ACETYLSALICYLIC ACID [Concomitant]
     Dosage: UNK
  14. VITAMIN D [Concomitant]
     Dosage: UNK
  15. CALCIUM [Concomitant]
     Dosage: UNK
  16. CENTRUM SILVER [Concomitant]
     Dosage: UNK
  17. OMEGA 3-6-9 [Concomitant]
     Dosage: UNK
  18. MAGNESIUM [Concomitant]
     Dosage: UNK

REACTIONS (5)
  - CAUSTIC INJURY [None]
  - DYSGEUSIA [None]
  - LUNG DISORDER [None]
  - PRODUCT QUALITY ISSUE [None]
  - TONGUE DISCOLOURATION [None]
